FAERS Safety Report 6230823-8 (Version None)
Quarter: 2009Q2

REPORT INFORMATION
  Report Type: 
  Country: None (occurrence: None)
  Receive Date: 20090611
  Receipt Date: 20090529
  Transmission Date: 20091009
  Serious: Yes (Hospitalization)
  Sender: FDA-Public Use
  Company Number: FR-1169809

PATIENT
  Age: 78 Year
  Sex: Male

DRUGS (9)
  1. AZOPT [Suspect]
     Indication: GLAUCOMA
     Dosage: OPHTHALMIC
     Route: 047
     Dates: start: 20080201, end: 20090401
  2. HYZAAR [Concomitant]
  3. METFORMIN HCL [Concomitant]
  4. RABEPRAZOLE SODIUM [Concomitant]
  5. PREVISCAN (PENTOXIFYLLINE) [Concomitant]
  6. SEREVENT [Concomitant]
  7. SPIRIVA [Concomitant]
  8. PROLAIR (BECLOMETASONE) [Concomitant]
  9. XALATAN [Concomitant]

REACTIONS (8)
  - DILATATION VENTRICULAR [None]
  - INTERSTITIAL LUNG DISEASE [None]
  - PULMONARY ARTERIAL HYPERTENSION [None]
  - PULMONARY FIBROSIS [None]
  - RAYNAUD'S PHENOMENON [None]
  - RESTRICTIVE PULMONARY DISEASE [None]
  - SCLERODERMA [None]
  - SKIN ULCER [None]
